FAERS Safety Report 10372756 (Version 1)
Quarter: 2014Q3

REPORT INFORMATION
  Report Type: Spontaneous
  Country: RU (occurrence: RU)
  Receive Date: 20140808
  Receipt Date: 20140808
  Transmission Date: 20150326
  Serious: Yes (Hospitalization)
  Sender: FDA-Public Use
  Company Number: RU-WATSON-2014-13903

PATIENT
  Sex: Female

DRUGS (1)
  1. EMLA [Suspect]
     Active Substance: LIDOCAINE\PRILOCAINE
     Indication: ANAESTHESIA
     Dosage: UNK, UNKNOWN
     Route: 061

REACTIONS (2)
  - Dizziness [Unknown]
  - Tachycardia [Unknown]
